FAERS Safety Report 4594180-5 (Version None)
Quarter: 2005Q1

REPORT INFORMATION
  Report Type: 
  Country: None (occurrence: None)
  Receive Date: 20050301
  Receipt Date: 20050222
  Transmission Date: 20050727
  Serious: Yes (Hospitalization)
  Sender: FDA-Public Use
  Company Number: GB-GLAXOSMITHKLINE-B0372582A

PATIENT
  Age: 81 Year
  Sex: Male

DRUGS (2)
  1. CO-AMOXICLAV [Suspect]
     Indication: SEPSIS
     Dosage: 625MG PER DAY
     Route: 048
     Dates: start: 20050202, end: 20050206
  2. SODIUM FUSIDATE [Suspect]
     Indication: SEPSIS
     Dosage: 500MG PER DAY
     Route: 048
     Dates: start: 20050201, end: 20050207

REACTIONS (1)
  - LIVER FUNCTION TEST ABNORMAL [None]
